FAERS Safety Report 8840882 (Version 2)
Quarter: 2013Q1

REPORT INFORMATION
  Report Type: Report from Study
  Country: US (occurrence: US)
  Receive Date: 20121015
  Receipt Date: 20130218
  Transmission Date: 20140127
  Serious: Yes (Death, Other)
  Sender: FDA-Public Use
  Company Number: US-ROCHE-1144815

PATIENT
  Age: 58 Year
  Sex: Female

DRUGS (4)
  1. BEVACIZUMAB [Suspect]
     Indication: NON-SMALL CELL LUNG CANCER
     Route: 042
  2. IXABEPILONE [Suspect]
     Indication: NON-SMALL CELL LUNG CANCER
     Route: 042
  3. CARBOPLATIN [Suspect]
     Indication: NON-SMALL CELL LUNG CANCER
     Dosage: AUC = 6
     Route: 042
  4. DEXAMETHASONE [Concomitant]
     Indication: PROPHYLAXIS

REACTIONS (5)
  - Pneumonia [Fatal]
  - Dyspnoea [Unknown]
  - Fatigue [Unknown]
  - Pain [Unknown]
  - Dehydration [Unknown]
